FAERS Safety Report 5796060-6 (Version None)
Quarter: 2008Q3

REPORT INFORMATION
  Report Type: 
  Country: None (occurrence: None)
  Receive Date: 20080701
  Receipt Date: 20080620
  Transmission Date: 20090109
  Serious: Yes (Other)
  Sender: FDA-Public Use
  Company Number: US-JNJFOC-20080605497

PATIENT
  Age: 61 Year
  Sex: Female
  Weight: 72.12 kg

DRUGS (6)
  1. TOPAMAX [Suspect]
     Indication: MIGRAINE PROPHYLAXIS
     Route: 048
  2. DURAGESIC-100 [Suspect]
     Indication: ARTHRALGIA
     Route: 062
  3. SYNTHROID [Concomitant]
     Indication: HYPOTHYROIDISM
  4. POTASSIUM CHLORIDE [Concomitant]
     Indication: NUTRITIONAL SUPPORT
     Route: 048
  5. LASIX [Concomitant]
     Indication: FLUID RETENTION
     Route: 048
  6. ZOCOR [Concomitant]
     Indication: BLOOD CHOLESTEROL INCREASED
     Route: 048

REACTIONS (4)
  - DIARRHOEA [None]
  - FIBROMYALGIA [None]
  - MIGRAINE [None]
  - WEIGHT DECREASED [None]
